FAERS Safety Report 9839783 (Version 1)
Quarter: 2014Q1

REPORT INFORMATION
  Report Type: Spontaneous
  Country: US (occurrence: US)
  Receive Date: 20140124
  Receipt Date: 20140124
  Transmission Date: 20141002
  Serious: No
  Sender: FDA-Public Use
  Company Number: US-BIOGENIDEC-2014BI006214

PATIENT
  Age: 37 Year
  Sex: Female
  Weight: 68 kg

DRUGS (4)
  1. TECFIDERA [Suspect]
     Indication: MULTIPLE SCLEROSIS
     Route: 048
     Dates: start: 20140105, end: 20140111
  2. TECFIDERA [Suspect]
     Indication: MULTIPLE SCLEROSIS
     Route: 048
     Dates: start: 20140112
  3. NEXIUM [Concomitant]
  4. VITAMIN D [Concomitant]

REACTIONS (6)
  - Faeces discoloured [Unknown]
  - Flushing [Unknown]
  - Rash [Unknown]
  - Pruritus [Unknown]
  - Diarrhoea [Unknown]
  - Vomiting [Unknown]
